FAERS Safety Report 5838880-5 (Version None)
Quarter: 2008Q3

REPORT INFORMATION
  Report Type: 
  Country: None (occurrence: None)
  Receive Date: 20080804
  Receipt Date: 20080709
  Transmission Date: 20090109
  Serious: No
  Sender: FDA-Public Use
  Company Number: 2008US001778

PATIENT
  Age: 86 Year
  Sex: Female

DRUGS (1)
  1. LEXISCAN [Suspect]
     Indication: DRUG USE FOR UNKNOWN INDICATION

REACTIONS (2)
  - HEADACHE [None]
  - NAUSEA [None]
